FAERS Safety Report 5036550-7 (Version None)
Quarter: 2006Q2

REPORT INFORMATION
  Report Type: 
  Country: None (occurrence: None)
  Receive Date: 20060613
  Receipt Date: 20060331
  Transmission Date: 20061013
  Serious: Yes (Other)
  Sender: FDA-Public Use
  Company Number: US-JNJFOC-20060401736

PATIENT
  Sex: Female

DRUGS (1)
  1. ORTHO EVRA [Suspect]
     Indication: CONTRACEPTION
     Dosage: 3 DOSE(S), 1 IN 4 WEEK, TRANSDERMAL
     Route: 062
     Dates: start: 20040701, end: 20040901

REACTIONS (2)
  - PULMONARY EMBOLISM [None]
  - THROMBOSIS [None]
